FAERS Safety Report 19015312 (Version 3)
Quarter: 2022Q1

REPORT INFORMATION
  Report Type: Spontaneous
  Country: US (occurrence: US)
  Receive Date: 20210316
  Receipt Date: 20220204
  Transmission Date: 20220423
  Serious: No
  Sender: FDA-Public Use
  Company Number: US-JNJFOC-20210311205

PATIENT
  Age: 29 Year
  Sex: Female

DRUGS (1)
  1. MOTRIN INFANTS [Suspect]
     Active Substance: IBUPROFEN
     Indication: Accidental exposure to product
     Route: 048
     Dates: start: 20210302

REACTIONS (7)
  - Drug hypersensitivity [Recovered/Resolved]
  - Tongue disorder [Recovered/Resolved]
  - Throat tightness [Recovered/Resolved]
  - Lip blister [Recovered/Resolved]
  - Accidental exposure to product [Unknown]
  - Product use in unapproved indication [Unknown]
  - Product administered to patient of inappropriate age [Unknown]

NARRATIVE: CASE EVENT DATE: 20210302
